FAERS Safety Report 6651285-2 (Version None)
Quarter: 2010Q1

REPORT INFORMATION
  Report Type: 
  Country: None (occurrence: None)
  Receive Date: 20100322
  Receipt Date: 20100309
  Transmission Date: 20100710
  Serious: Yes (Other)
  Sender: FDA-Public Use
  Company Number: 2010AP000477

PATIENT
  Age: 79 Year
  Sex: Male

DRUGS (11)
  1. LAMOTRIGINE [Suspect]
     Indication: CONVULSION
     Dosage: 25 MG; PO QD
     Route: 048
     Dates: start: 20091214, end: 20100101
  2. LAMOTRIGINE [Suspect]
     Indication: CONVULSION
     Dosage: 25 MG; PO QD
     Route: 048
     Dates: start: 20100101
  3. ARICEPT /JPN/ (DONEPEZIL HYDROCHLORIDE) [Suspect]
     Indication: DEMENTIA ALZHEIMER'S TYPE
     Dosage: 5 MG; PO;QD
     Dates: start: 20091114, end: 20100101
  4. ARICEPT /JPN/ (DONEPEZIL HYDROCHLORIDE) [Suspect]
     Indication: DEMENTIA ALZHEIMER'S TYPE
     Dosage: 5 MG; PO;QD
     Dates: start: 20100101
  5. TEMAZEPAM [Suspect]
     Indication: INSOMNIA
     Dosage: 20MG;PO;QD
     Route: 048
     Dates: start: 20091230, end: 20100101
  6. TEMAZEPAM [Suspect]
     Indication: INSOMNIA
     Dosage: 20MG;PO;QD
     Route: 048
     Dates: start: 20100101
  7. CLOZAPINE [Suspect]
     Indication: PSYCHOTIC DISORDER
     Dosage: 12.5 MG; PO; QD
     Route: 048
     Dates: start: 20100118, end: 20100118
  8. CLOZAPINE [Suspect]
     Indication: PSYCHOTIC DISORDER
     Dosage: 12.5 MG; PO; QD
     Route: 048
     Dates: start: 20100101
  9. ATENOLOL [Concomitant]
  10. CLOPIDOGREL [Concomitant]
  11. LISINOPRIL [Concomitant]

REACTIONS (3)
  - HYPOXIA [None]
  - SOMNOLENCE [None]
  - UNRESPONSIVE TO STIMULI [None]
